FAERS Safety Report 23895749 (Version 1)
Quarter: 2024Q2

REPORT INFORMATION
  Report Type: Spontaneous
  Country: GB (occurrence: GB)
  Receive Date: 20240524
  Receipt Date: 20240524
  Transmission Date: 20240716
  Serious: Yes (Other)
  Sender: FDA-Public Use
  Company Number: GB-MYLANLABS-2024M1046624

PATIENT
  Sex: Male

DRUGS (1)
  1. CLOZARIL [Suspect]
     Active Substance: CLOZAPINE
     Indication: Schizophrenia
     Dosage: UNK
     Route: 048
     Dates: start: 20240517

REACTIONS (5)
  - Suicide attempt [Unknown]
  - Delusion [Unknown]
  - Emotional distress [Unknown]
  - Quality of life decreased [Unknown]
  - Off label use [Unknown]
